FAERS Safety Report 8351496-4 (Version None)
Quarter: 2012Q2

REPORT INFORMATION
  Report Type: 
  Country: None (occurrence: None)
  Receive Date: 20120510
  Receipt Date: 20120508
  Transmission Date: 20120825
  Serious: Yes (Other)
  Sender: FDA-Public Use
  Company Number: PT-AMGEN-PRTSP2012029128

PATIENT
  Sex: Female

DRUGS (2)
  1. NPLATE [Suspect]
     Indication: PRODUCT USED FOR UNKNOWN INDICATION
     Dosage: 3 MUG/KG, UNK
     Route: 065
     Dates: start: 20120419
  2. LEPICORTINOLO [Concomitant]
     Dosage: UNK
     Dates: end: 20120423

REACTIONS (3)
  - OVERDOSE [None]
  - PLATELET COUNT DECREASED [None]
  - HAEMORRHAGIC DIATHESIS [None]
